FAERS Safety Report 22183696 (Version 1)
Quarter: 2023Q2

REPORT INFORMATION
  Report Type: Other
  Country: None (occurrence: IR)
  Receive Date: 20230406
  Receipt Date: 20230406
  Transmission Date: 20230722
  Serious: Yes (Hospitalization)
  Sender: FDA-Public Use
  Company Number: IR-B.Braun Medical Inc.-2140021

PATIENT
  Age: 47 Year
  Sex: Female

DRUGS (7)
  1. CEFEPIME HYDROCHLORIDE AND DEXTROSE [Suspect]
     Active Substance: CEFEPIME HYDROCHLORIDE
     Indication: Pyrexia
     Route: 042
  2. LOSARTAN [Concomitant]
     Active Substance: LOSARTAN
  3. HEPARIN [Suspect]
     Active Substance: HEPARIN SODIUM
  4. HYDROXYCHLOROQUINE [Suspect]
     Active Substance: HYDROXYCHLOROQUINE
  5. LOPINAVIR\RITONAVIR [Suspect]
     Active Substance: LOPINAVIR\RITONAVIR
  6. LEVOFLOXACIN [Suspect]
     Active Substance: LEVOFLOXACIN
  7. VANCOMYCIN [Suspect]
     Active Substance: VANCOMYCIN

REACTIONS (1)
  - Drug ineffective [Unknown]
